FAERS Safety Report 11929073 (Version 1)
Quarter: 2016Q1

REPORT INFORMATION
  Report Type: Report from Study
  Country: CA (occurrence: CA)
  Receive Date: 20160120
  Receipt Date: 20160120
  Transmission Date: 20160526
  Serious: Yes (Other)
  Sender: FDA-Public Use
  Company Number: CA-ROCHE-1330820

PATIENT
  Age: 77 Year
  Sex: Female

DRUGS (13)
  1. ASA [Concomitant]
     Active Substance: ASPIRIN
  2. ESOMEPRAZOLE [Concomitant]
     Active Substance: ESOMEPRAZOLE
  3. METHYLPREDNISOLONE. [Concomitant]
     Active Substance: METHYLPREDNISOLONE
     Route: 042
     Dates: start: 20130813
  4. WINPRED [Concomitant]
     Active Substance: PREDNISONE
  5. PROLIA [Concomitant]
     Active Substance: DENOSUMAB
  6. RIVA D [Concomitant]
  7. SIMVASTATIN. [Concomitant]
     Active Substance: SIMVASTATIN
  8. ACETAMINOPHEN. [Concomitant]
     Active Substance: ACETAMINOPHEN
     Route: 048
     Dates: start: 20130813
  9. CYCLOBENZAPRINE [Concomitant]
     Active Substance: CYCLOBENZAPRINE
  10. RITUXAN [Suspect]
     Active Substance: RITUXIMAB
     Indication: RHEUMATOID ARTHRITIS
     Dosage: DATE OF MOST RECENT DOSE:  12/MAR/2015
     Route: 042
     Dates: start: 20130813
  11. SYNTHROID [Concomitant]
     Active Substance: LEVOTHYROXINE SODIUM
  12. VALSARTAN HCT [Concomitant]
     Active Substance: HYDROCHLOROTHIAZIDE\VALSARTAN
  13. SENNOSIDES. [Concomitant]
     Active Substance: SENNOSIDES

REACTIONS (3)
  - Herpes zoster [Unknown]
  - Hypoaesthesia [Unknown]
  - Gastroenteritis viral [Recovering/Resolving]

NARRATIVE: CASE EVENT DATE: 201312
